FAERS Safety Report 14483075 (Version 2)
Quarter: 2018Q1

REPORT INFORMATION
  Report Type: Spontaneous
  Country: US (occurrence: US)
  Receive Date: 20180203
  Receipt Date: 20180326
  Transmission Date: 20180509
  Serious: Yes (Other)
  Sender: FDA-Public Use
  Company Number: US-BRISTOL-MYERS SQUIBB COMPANY-BMS-2018-007839

PATIENT
  Age: 70 Year
  Sex: Female
  Weight: 72.57 kg

DRUGS (1)
  1. OPDIVO [Suspect]
     Active Substance: NIVOLUMAB
     Indication: METASTATIC MALIGNANT MELANOMA
     Dosage: UNK
     Route: 065
     Dates: start: 20160510, end: 20180110

REACTIONS (6)
  - Fatigue [Unknown]
  - Chills [Unknown]
  - Tremor [Unknown]
  - Skin lesion [Unknown]
  - Lung infiltration [Unknown]
  - Hypersensitivity [Unknown]

NARRATIVE: CASE EVENT DATE: 20171215
